FAERS Safety Report 4961760-4 (Version None)
Quarter: 2006Q1

REPORT INFORMATION
  Report Type: 
  Country: None (occurrence: None)
  Receive Date: 20060329
  Receipt Date: 20060321
  Transmission Date: 20060701
  Serious: Yes (Life-Threatening)
  Sender: FDA-Public Use
  Company Number: 2006EU001001

PATIENT
  Age: 1 Year
  Sex: Male
  Weight: 5.7 kg

DRUGS (16)
  1. PROGRAF [Suspect]
     Indication: TRANSPLANT
     Dosage: 0.4 MG, UNKNOWN/D, UNK
     Route: 065
     Dates: start: 20060201
  2. RANITIDINE [Concomitant]
  3. ASPIRIN [Concomitant]
  4. DIPYRIDAMOLE [Concomitant]
  5. MORPHINE [Concomitant]
  6. MIDAZOLAM HCL [Concomitant]
  7. MEROPENEM (MEROPENEM) [Concomitant]
  8. AMBISOME [Concomitant]
  9. FUROSEMIDE [Concomitant]
  10. CEFUROXIME [Concomitant]
  11. ACYCLOVIR [Concomitant]
  12. VANCOMYCIN [Concomitant]
  13. OMEPRAZOLE [Concomitant]
  14. COLISTIN SULFATE (COLISTIN SULFATE) [Concomitant]
  15. METHYLPREDNISOLONE [Concomitant]
  16. NORADRENALINE (NOREPINEPHRINE) [Concomitant]

REACTIONS (1)
  - BRAIN OEDEMA [None]
